FAERS Safety Report 24560679 (Version 1)
Quarter: 2024Q4

REPORT INFORMATION
  Report Type: Spontaneous
  Country: US (occurrence: None)
  Receive Date: 20241028
  Receipt Date: 20241028
  Transmission Date: 20250115
  Serious: Yes (Death)
  Sender: Public
  Company Number: None

PATIENT
  Age: 33 Year
  Sex: Female
  Weight: 99 kg

DRUGS (2)
  1. INDOMETHACIN [Suspect]
     Active Substance: INDOMETHACIN
     Indication: Premature labour
     Dosage: OTHER QUANTITY : 3 CAPSULE(S);?FREQUENCY : 3 TIMES A DAY;?
     Route: 048
     Dates: start: 20240826, end: 20240827
  2. LABETALOL [Concomitant]
     Active Substance: LABETALOL

REACTIONS (5)
  - Foetal hypokinesia [None]
  - Ultrasound foetal abnormal [None]
  - Exposure during pregnancy [None]
  - Amniotic fluid volume decreased [None]
  - Premature labour [None]

NARRATIVE: CASE EVENT DATE: 20240828
